FAERS Safety Report 4853106-7 (Version None)
Quarter: 2005Q4

REPORT INFORMATION
  Report Type: 
  Country: None (occurrence: None)
  Receive Date: 20051212
  Receipt Date: 20051121
  Transmission Date: 20060501
  Serious: Yes (Other)
  Sender: FDA-Public Use
  Company Number: US200511002366

PATIENT
  Age: 63 Year
  Sex: Female

DRUGS (19)
  1. FORTEO [Suspect]
     Dates: start: 20051118, end: 20051119
  2. FORTEO PEN (250MCG/ML) (FORTEO PEN 250MCG/ML (3ML)) [Concomitant]
  3. PEN,DISPOSABLE [Concomitant]
  4. LOPRESSOR [Concomitant]
  5. PRILOSEC [Concomitant]
  6. BETAMETHASONE [Concomitant]
  7. CONJUGATED ESTROGENS [Concomitant]
  8. PLAVIX [Concomitant]
  9. SIMVASTATIN [Concomitant]
  10. SALBUTAMOL (SALBUTAMOL) [Concomitant]
  11. ZANTAC [Concomitant]
  12. SYNTHROID [Concomitant]
  13. FLOVENT [Concomitant]
  14. COMBIVENT [Concomitant]
  15. POTASSIUM CHLORIDE [Concomitant]
  16. ASPIRIN [Concomitant]
  17. VIACTIV (CALCIUM) [Concomitant]
  18. FOLIC ACID [Concomitant]
  19. NITROGLYCERIN [Concomitant]

REACTIONS (4)
  - EYELID DISORDER [None]
  - HYPOAESTHESIA [None]
  - HYPOAESTHESIA ORAL [None]
  - PALPITATIONS [None]
